FAERS Safety Report 16678257 (Version 4)
Quarter: 2019Q3

REPORT INFORMATION
  Report Type: Spontaneous
  Country: US (occurrence: US)
  Receive Date: 20190807
  Receipt Date: 20190926
  Transmission Date: 20191004
  Serious: Yes (Hospitalization, Other)
  Sender: FDA-Public Use
  Company Number: US-PFIZER INC-2019335142

PATIENT
  Age: 58 Year
  Sex: Female
  Weight: 64.86 kg

DRUGS (5)
  1. GABAPENTIN. [Suspect]
     Active Substance: GABAPENTIN
     Dosage: 100 MG, UNK
  2. GABAPENTIN. [Suspect]
     Active Substance: GABAPENTIN
     Dosage: 300 MG, 4X/DAY
  3. GABAPENTIN. [Suspect]
     Active Substance: GABAPENTIN
     Indication: NEUROPATHY PERIPHERAL
     Dosage: UNK
     Dates: start: 2013
  4. GABAPENTIN. [Suspect]
     Active Substance: GABAPENTIN
     Dosage: 300 MG, 3X/DAY
  5. GABAPENTIN. [Suspect]
     Active Substance: GABAPENTIN
     Dosage: 400 MG, 4X/DAY
     Route: 048
     Dates: start: 20130327, end: 201909

REACTIONS (21)
  - Restless legs syndrome [Unknown]
  - Drug ineffective for unapproved indication [Unknown]
  - Intentional product misuse [Unknown]
  - Weight decreased [Unknown]
  - Gastrointestinal disorder [Unknown]
  - Off label use [Unknown]
  - Aneurysm [Unknown]
  - Insomnia [Unknown]
  - Appetite disorder [Unknown]
  - Cerebral disorder [Recovering/Resolving]
  - Ovarian disorder [Unknown]
  - Memory impairment [Unknown]
  - Pelvic fracture [Unknown]
  - Loss of consciousness [Unknown]
  - Dizziness [Unknown]
  - Disturbance in attention [Unknown]
  - Nausea [Unknown]
  - Restlessness [Unknown]
  - Narcolepsy [Unknown]
  - Somnolence [Unknown]
  - Dehydration [Unknown]

NARRATIVE: CASE EVENT DATE: 201610
